FAERS Safety Report 8928973 (Version 1)
Quarter: 2012Q4

REPORT INFORMATION
  Report Type: 
  Country: FR (occurrence: FR)
  Receive Date: 20121127
  Receipt Date: 20121127
  Transmission Date: 20130627
  Serious: Yes (Hospitalization)
  Sender: FDA-Public Use
  Company Number: FR-UCBSA-071497

PATIENT
  Age: 66 Year
  Sex: Female

DRUGS (9)
  1. CIMZIA [Suspect]
     Indication: RHEUMATOID ARTHRITIS
     Route: 058
     Dates: start: 20120807, end: 20120918
  2. RIFINAH [Concomitant]
     Indication: LUNG INFECTION
     Dosage: 300MG/ 150 MG, 1 TABLET DAILY
     Route: 048
     Dates: start: 20120720, end: 20120918
  3. CACIT VITAMINE D3 [Concomitant]
     Indication: CALCIUM DEFICIENCY
     Dosage: 1000MG/880 IU
     Route: 048
     Dates: start: 2009
  4. ACTONEL [Concomitant]
     Indication: OSTEOPOROSIS PROPHYLAXIS
     Route: 048
     Dates: start: 2009
  5. PLAVIX [Concomitant]
     Indication: ACUTE CORONARY SYNDROME
     Dosage: DAILY DOSE: 75MG
     Route: 048
     Dates: start: 2012
  6. TRIATEC [Concomitant]
     Indication: ACUTE CORONARY SYNDROME
     Dosage: DAILY DOSE:1.25MG
     Route: 048
     Dates: start: 2012
  7. CARDENSIEL [Concomitant]
     Indication: ACUTE CORONARY SYNDROME
     Dosage: DAILY DOSE:2.5MG
     Route: 048
     Dates: start: 2012
  8. TAHOR [Concomitant]
     Indication: ACUTE CORONARY SYNDROME
     Dosage: DAILY DOSE: 80 MG
     Route: 048
     Dates: start: 2012
  9. EUPANTOL [Concomitant]
     Dosage: DAILY DOSE: 20MG
     Route: 048

REACTIONS (1)
  - Drug eruption [Not Recovered/Not Resolved]
